FAERS Safety Report 15578496 (Version 1)
Quarter: 2018Q4

REPORT INFORMATION
  Report Type: Spontaneous
  Country: JP (occurrence: JP)
  Receive Date: 20181102
  Receipt Date: 20181102
  Transmission Date: 20190205
  Serious: Yes (Other)
  Sender: FDA-Public Use
  Company Number: JP-LUPIN PHARMACEUTICALS INC.-2018-02910

PATIENT
  Age: 82 Year
  Sex: Female

DRUGS (4)
  1. CEFTRIAXONE. [Suspect]
     Active Substance: CEFTRIAXONE
     Indication: URINARY TRACT INFECTION
     Dosage: 2 G, UNK
     Route: 042
  2. THIAMAZOLE [Concomitant]
     Active Substance: METHIMAZOLE
     Indication: URINARY TRACT INFECTION
     Dosage: UNK
     Route: 065
  3. THIAMAZOLE [Concomitant]
     Active Substance: METHIMAZOLE
     Indication: ENTEROCOCCAL INFECTION
  4. CEFTRIAXONE. [Suspect]
     Active Substance: CEFTRIAXONE
     Indication: ENTEROCOCCAL INFECTION

REACTIONS (1)
  - Pseudocholelithiasis [Recovered/Resolved]
